FAERS Safety Report 9043195 (Version 1)
Quarter: 2013Q1

REPORT INFORMATION
  Report Type: Report from Study
  Country: US (occurrence: US)
  Receive Date: 20130129
  Receipt Date: 20130129
  Transmission Date: 20140127
  Serious: No
  Sender: FDA-Public Use
  Company Number: US-ABBOTT-12P-163-0914202-00

PATIENT
  Sex: Male
  Weight: 79 kg

DRUGS (11)
  1. HUMIRA 40 MG/0.8 ML PEN [Suspect]
     Indication: CROHN^S DISEASE
     Dates: start: 2011, end: 2011
  2. HUMIRA 40 MG/0.8 ML PEN [Suspect]
     Dates: start: 2011, end: 2011
  3. APRISO ER [Concomitant]
     Indication: CROHN^S DISEASE
  4. MESALAMINE [Concomitant]
     Indication: CROHN^S DISEASE
  5. PRILOSEC [Concomitant]
     Indication: GASTROOESOPHAGEAL REFLUX DISEASE
  6. FOLIC ACID [Concomitant]
     Indication: CROHN^S DISEASE
  7. LEVOCETIRIZINE [Concomitant]
     Indication: HYPERSENSITIVITY
  8. FLUOXETINE HCL [Concomitant]
     Indication: DEPRESSION
  9. VYVANSE [Concomitant]
     Indication: ATTENTION DEFICIT/HYPERACTIVITY DISORDER
  10. CALTRATE [Concomitant]
     Indication: MEDICAL DIET
  11. ZYRTEC [Concomitant]
     Indication: HYPERSENSITIVITY

REACTIONS (1)
  - No therapeutic response [Not Recovered/Not Resolved]
